FAERS Safety Report 9270692 (Version 2)
Quarter: 2013Q4

REPORT INFORMATION
  Report Type: Spontaneous
  Country: US (occurrence: US)
  Receive Date: 20130506
  Receipt Date: 20131030
  Transmission Date: 20140711
  Serious: Yes (Other)
  Sender: FDA-Public Use
  Company Number: US-PAR PHARMACEUTICAL, INC-2013SCPR005895

PATIENT
  Sex: 0

DRUGS (8)
  1. AMLODIPINE BESYLATE + BENAZEPRIL [Suspect]
     Indication: RAYNAUD^S PHENOMENON
     Dosage: UNK, UNKNOWN
     Route: 065
  2. AMPYRA [Suspect]
     Indication: GAIT DISTURBANCE
     Dosage: 10 MG, BID
     Route: 048
     Dates: start: 20110627
  3. METOPROLOL                         /00376902/ [Concomitant]
     Indication: PRODUCT USED FOR UNKNOWN INDICATION
     Dosage: UNK, UNKNOWN
     Route: 065
  4. CYMBALTA [Concomitant]
     Indication: PRODUCT USED FOR UNKNOWN INDICATION
     Dosage: UNK, UNKNOWN
     Route: 065
  5. CYCLOBENZAPRINE [Concomitant]
     Indication: PRODUCT USED FOR UNKNOWN INDICATION
     Dosage: UNK, UNKNOWN
     Route: 065
  6. FOLTX [Concomitant]
     Indication: PRODUCT USED FOR UNKNOWN INDICATION
     Dosage: UNK, UNKNOWN
     Route: 065
     Dates: start: 2001
  7. ESTRADIOL [Concomitant]
     Indication: PRODUCT USED FOR UNKNOWN INDICATION
     Dosage: UNK, UNKNOWN
     Route: 065
  8. THERAPEUTIC PRODUCTS [Concomitant]
     Indication: MUSCLE SPASMS
     Dosage: UNK, UNKNOWN
     Route: 065

REACTIONS (4)
  - Hallucination [Recovered/Resolved]
  - Local swelling [Unknown]
  - Influenza [Unknown]
  - Pneumonia [Unknown]
